FAERS Safety Report 24753488 (Version 1)
Quarter: 2024Q4

REPORT INFORMATION
  Report Type: Report from Study
  Country: ZA (occurrence: ZA)
  Receive Date: 20241219
  Receipt Date: 20241219
  Transmission Date: 20250114
  Serious: Yes (Other)
  Sender: ROCHE
  Company Number: ZA-002147023-NVSC2024ZA237331

PATIENT
  Age: 64 Year
  Sex: Female

DRUGS (1)
  1. LUCENTIS [Suspect]
     Active Substance: RANIBIZUMAB
     Indication: Neovascular age-related macular degeneration
     Dosage: 10 MG, QMO (10 MG IN 0.23ML)
     Route: 047
     Dates: start: 20240802

REACTIONS (2)
  - Pneumonia [Unknown]
  - Influenza [Unknown]
